FAERS Safety Report 8619987-6 (Version None)
Quarter: 2012Q3

REPORT INFORMATION
  Report Type: 
  Country: None (occurrence: None)
  Receive Date: 20120824
  Receipt Date: 20120817
  Transmission Date: 20120928
  Serious: Yes (Other)
  Sender: FDA-Public Use
  Company Number: US-FRI-1000037949

PATIENT
  Age: 80 Year
  Sex: Male
  Weight: 73 kg

DRUGS (7)
  1. GALANTAMINE HYDROBROMIDE [Concomitant]
     Indication: FAHR'S DISEASE
  2. ATENOLOL [Concomitant]
     Indication: HYPERTENSION
  3. AMLODIPINE [Suspect]
     Indication: HYPERTENSION
     Dates: end: 20120501
  4. PLAVIX [Concomitant]
     Indication: HYPERTENSION
  5. CLONAZEPAM [Suspect]
     Indication: RAPID EYE MOVEMENTS SLEEP ABNORMAL
     Dosage: 1/2 TABLET QD
     Dates: start: 20110801, end: 20120820
  6. ASPIRIN [Concomitant]
     Indication: HYPERTENSION
  7. NAMENDA [Suspect]
     Indication: FAHR'S DISEASE
     Dosage: 10 MG BID
     Route: 048
     Dates: start: 20110801

REACTIONS (11)
  - MALAISE [None]
  - TREMOR [None]
  - COGNITIVE DISORDER [None]
  - DIZZINESS [None]
  - AMNESIA [None]
  - BLOOD PRESSURE INCREASED [None]
  - LETHARGY [None]
  - WEIGHT DECREASED [None]
  - OFF LABEL USE [None]
  - CONFUSIONAL STATE [None]
  - THINKING ABNORMAL [None]
